FAERS Safety Report 12680695 (Version 2)
Quarter: 2016Q3

REPORT INFORMATION
  Report Type: Spontaneous
  Country: CN (occurrence: CN)
  Receive Date: 20160824
  Receipt Date: 20160921
  Transmission Date: 20161109
  Serious: Yes (Hospitalization)
  Sender: FDA-Public Use
  Company Number: CN-BAYER-2016-160560

PATIENT
  Age: 56 Year
  Sex: Male
  Weight: 57 kg

DRUGS (1)
  1. NEXAVAR [Suspect]
     Active Substance: SORAFENIB
     Indication: HEPATOCELLULAR CARCINOMA
     Dosage: 400 MG, BID
     Route: 048
     Dates: start: 20140909, end: 201410

REACTIONS (1)
  - Hepatic cirrhosis [None]

NARRATIVE: CASE EVENT DATE: 201410
